FAERS Safety Report 7500537-2 (Version None)
Quarter: 2011Q2

REPORT INFORMATION
  Report Type: 
  Country: None (occurrence: None)
  Receive Date: 20110524
  Receipt Date: 20110520
  Transmission Date: 20111010
  Serious: Yes (Hospitalization)
  Sender: FDA-Public Use
  Company Number: GB-AMGEN-GBRCT2011026452

PATIENT
  Age: 72 Year
  Sex: Male

DRUGS (6)
  1. EPIRUBICIN [Concomitant]
     Dosage: UNK
     Dates: start: 20110321
  2. IMODIUM [Concomitant]
     Dosage: UNK UNK, PRN
     Dates: start: 20110414
  3. CAPECITABINE [Concomitant]
     Dosage: UNK
     Dates: start: 20110321, end: 20110418
  4. MAXOLON [Concomitant]
     Dosage: UNK UNK, PRN
     Dates: start: 20110417, end: 20110419
  5. OXALIPLATIN [Concomitant]
     Dosage: UNK
     Dates: start: 20110321
  6. PANITUMUMAB [Suspect]
     Indication: OESOPHAGEAL CARCINOMA
     Dosage: UNK
     Dates: start: 20110321

REACTIONS (3)
  - LETHARGY [None]
  - DIARRHOEA [None]
  - NAUSEA [None]
